FAERS Safety Report 8342941-9 (Version None)
Quarter: 2012Q2

REPORT INFORMATION
  Report Type: 
  Country: None (occurrence: None)
  Receive Date: 20120504
  Receipt Date: 20120504
  Transmission Date: 20120825
  Serious: Yes (Other)
  Sender: FDA-Public Use
  Company Number: None

PATIENT
  Age: 85 Year
  Sex: Male
  Weight: 90.7194 kg

DRUGS (11)
  1. METOPROLOL TARTRATE [Concomitant]
  2. AMLODIPINE [Concomitant]
  3. NOVOLIN N [Concomitant]
  4. SIMVASTATIN [Concomitant]
  5. OMEPRAZOLE [Concomitant]
  6. TRAMADOL HCL [Concomitant]
  7. ISOSORBIDE (ISOSORBIDE) [Concomitant]
  8. NOVOLIN R [Concomitant]
  9. DOCUSATE (DOCUSATE) [Concomitant]
  10. LISTERINE WHITENING PRE-BRUSH RINSE VIBRANT WHITE (ORAL CARE PRODUCTS) [Suspect]
     Indication: DENTAL CARE
     Dosage: 1/2 CAPFUL TWICE DAILY. ORAL
     Route: 048
     Dates: start: 20120201
  11. LYRICA [Concomitant]

REACTIONS (2)
  - ORAL DISCOMFORT [None]
  - AGEUSIA [None]
